FAERS Safety Report 4501470-0 (Version None)
Quarter: 2004Q4

REPORT INFORMATION
  Report Type: 
  Country: None (occurrence: None)
  Receive Date: 20040928
  Receipt Date: 20040817
  Transmission Date: 20050328
  Serious: No
  Sender: FDA-Public Use
  Company Number: 04P-163-0270956-00

PATIENT
  Age: 76 Year
  Sex: Female
  Weight: 68.9467 kg

DRUGS (8)
  1. HUMIRA [Suspect]
     Indication: RHEUMATOID ARTHRITIS
     Dosage: 40 MG, 1 IN 2 WK, SUBCUTANEOUS
     Route: 058
     Dates: start: 20040623
  2. METHOTREXATE [Concomitant]
  3. LEVOTHYROXINE SODIUM [Concomitant]
  4. LISINOPRIL [Concomitant]
  5. FOLIC ACID [Concomitant]
  6. VENLAFAXINE HYDROCHLORIDE [Concomitant]
  7. CALCIUM [Concomitant]
  8. ALENDRONATE SODIUM [Concomitant]

REACTIONS (4)
  - ARTHRALGIA [None]
  - CONSTIPATION [None]
  - HEADACHE [None]
  - INJECTION SITE SWELLING [None]
